FAERS Safety Report 5583538-3 (Version None)
Quarter: 2007Q4

REPORT INFORMATION
  Report Type: 
  Country: None (occurrence: None)
  Receive Date: 20071231
  Receipt Date: 20071217
  Transmission Date: 20080405
  Serious: Yes (Death)
  Sender: FDA-Public Use
  Company Number: 021726

PATIENT
  Age: 41 Year
  Sex: Female
  Weight: 77.1 kg

DRUGS (1)
  1. ADDERALL 10 [Suspect]
     Indication: DISTURBANCE IN ATTENTION
     Dosage: 30 MG, QD, ORAL
     Route: 048
     Dates: start: 20060101, end: 20070822

REACTIONS (4)
  - ACCIDENTAL DEATH [None]
  - DRUG TOXICITY [None]
  - HAEMORRHAGE SUBCUTANEOUS [None]
  - HEAD INJURY [None]
